FAERS Safety Report 5000181-5 (Version None)
Quarter: 2006Q1

REPORT INFORMATION
  Report Type: 
  Country: None (occurrence: None)
  Receive Date: 20060315
  Receipt Date: 20060210
  Transmission Date: 20060701
  Serious: Yes (Other)
  Sender: FDA-Public Use
  Company Number: 436187

PATIENT
  Sex: Female

DRUGS (1)
  1. BONIVA [Suspect]
     Dates: start: 20060201

REACTIONS (2)
  - ERUCTATION [None]
  - HEADACHE [None]
